FAERS Safety Report 6164247-9 (Version None)
Quarter: 2009Q2

REPORT INFORMATION
  Report Type: 
  Country: None (occurrence: None)
  Receive Date: 20090420
  Receipt Date: 20090407
  Transmission Date: 20091009
  Serious: No
  Sender: FDA-Public Use
  Company Number: 2009-194736-NL

PATIENT
  Age: 31 Year
  Sex: Female

DRUGS (1)
  1. ETONOGESTREL [Suspect]
     Indication: CONTRACEPTION
     Dosage: DF
     Route: 058
     Dates: start: 20080703, end: 20090406

REACTIONS (3)
  - CERVICAL DYSPLASIA [None]
  - HEADACHE [None]
  - NAUSEA [None]
